FAERS Safety Report 4679625-4 (Version None)
Quarter: 2005Q2

REPORT INFORMATION
  Report Type: 
  Country: None (occurrence: None)
  Receive Date: 20050531
  Receipt Date: 20050519
  Transmission Date: 20051028
  Serious: Yes (Hospitalization)
  Sender: FDA-Public Use
  Company Number: B0380013A

PATIENT
  Age: 38 Year
  Sex: Male
  Weight: 72.8477 kg

DRUGS (6)
  1. PAXIL [Suspect]
     Indication: DEPRESSION
     Dosage: PER DAY/  ORAL
     Route: 048
     Dates: start: 20050315, end: 20050423
  2. LITHIUM CARBONATE [Concomitant]
  3. TANDOSPIRONE CITRATE [Concomitant]
  4. BROTIZOLAM [Concomitant]
  5. LORAZEPAM [Concomitant]
  6. TEPRENONE [Concomitant]

REACTIONS (8)
  - ABDOMINAL PAIN UPPER [None]
  - HEADACHE [None]
  - LIVER DISORDER [None]
  - MALAISE [None]
  - NAUSEA [None]
  - PRURITUS [None]
  - RASH GENERALISED [None]
  - SOMNOLENCE [None]
